FAERS Safety Report 19024250 (Version 1)
Quarter: 2021Q1

REPORT INFORMATION
  Report Type: Spontaneous
  Country: JP (occurrence: JP)
  Receive Date: 20210318
  Receipt Date: 20210318
  Transmission Date: 20210420
  Serious: Yes (Other)
  Sender: FDA-Public Use
  Company Number: JP-REGENERON PHARMACEUTICALS, INC.-2021-34059

PATIENT

DRUGS (3)
  1. EYLEA [Suspect]
     Active Substance: AFLIBERCEPT
     Dosage: 2MG, RIGHT EYE, ONCE
     Dates: start: 20210120, end: 20210120
  2. EYLEA [Suspect]
     Active Substance: AFLIBERCEPT
     Indication: MACULAR TELANGIECTASIA
     Dosage: 2MG, RIGHT EYE, ONCE
     Dates: start: 20201028, end: 20201028
  3. EYLEA [Suspect]
     Active Substance: AFLIBERCEPT
     Dosage: 2MG, RIGHT EYE, ONCE
     Dates: start: 20201125, end: 20201125

REACTIONS (3)
  - Blindness transient [Recovered/Resolved]
  - Blindness transient [Recovered/Resolved]
  - Blindness transient [Recovered/Resolved]

NARRATIVE: CASE EVENT DATE: 20201028
